FAERS Safety Report 12135009 (Version 1)
Quarter: 2016Q1

REPORT INFORMATION
  Report Type: Not Available
  Country: None (occurrence: US)
  Receive Date: 20160301
  Receipt Date: 20160301
  Transmission Date: 20160526
  Serious: No
  Sender: FDA-Public Use
  Company Number: US-AKORN-25362

PATIENT
  Age: 69 Year
  Sex: Female
  Weight: 102 kg

DRUGS (1)
  1. ZIOPTAN [Suspect]
     Active Substance: TAFLUPROST

REACTIONS (3)
  - Blindness [None]
  - Foreign body sensation in eyes [None]
  - Visual impairment [None]
